FAERS Safety Report 14677167 (Version 1)
Quarter: 2018Q1

REPORT INFORMATION
  Report Type: Spontaneous
  Country: US (occurrence: US)
  Receive Date: 20180323
  Receipt Date: 20180323
  Transmission Date: 20180509
  Serious: Yes (Death)
  Sender: FDA-Public Use
  Company Number: None

PATIENT
  Sex: Male

DRUGS (7)
  1. CALCIUM [Concomitant]
     Active Substance: CALCIUM
  2. FERROUS SULF [Concomitant]
     Active Substance: FERROUS SULFATE
  3. TRAMADOL. [Concomitant]
     Active Substance: TRAMADOL
  4. IRON [Concomitant]
     Active Substance: IRON
  5. LUPRON DEPOT [Suspect]
     Active Substance: LEUPROLIDE ACETATE
     Indication: PROSTATE CANCER
     Dosage: ?          OTHER FREQUENCY:Q4M;?
     Route: 030
     Dates: start: 20160412
  6. TAMSULOSIN [Concomitant]
     Active Substance: TAMSULOSIN
  7. ODANSETRON [Concomitant]
     Active Substance: ONDANSETRON

REACTIONS (1)
  - Death [None]
